FAERS Safety Report 7789155-9 (Version None)
Quarter: 2011Q3

REPORT INFORMATION
  Report Type: 
  Country: None (occurrence: None)
  Receive Date: 20110930
  Receipt Date: 20110921
  Transmission Date: 20111222
  Serious: Yes (Hospitalization, Other)
  Sender: FDA-Public Use
  Company Number: GT-MILLENNIUM PHARMACEUTICALS, INC.-2011-04503

PATIENT

DRUGS (1)
  1. VELCADE [Suspect]
     Indication: RENAL AMYLOIDOSIS
     Route: 042

REACTIONS (3)
  - OFF LABEL USE [None]
  - DIARRHOEA [None]
  - NEPHROTIC SYNDROME [None]
